FAERS Safety Report 10330698 (Version 3)
Quarter: 2014Q3

REPORT INFORMATION
  Report Type: Spontaneous
  Country: BR (occurrence: BR)
  Receive Date: 20140722
  Receipt Date: 20140806
  Transmission Date: 20150326
  Serious: Yes (Other)
  Sender: FDA-Public Use
  Company Number: PHHY2014BR086287

PATIENT
  Age: 61 Year
  Sex: Male

DRUGS (9)
  1. STARFORM [Suspect]
     Active Substance: METFORMIN\NATEGLINIDE
     Indication: DIABETES MELLITUS
     Dosage: 1 DF, DAILY
     Dates: start: 2003
  2. STARFORM [Suspect]
     Active Substance: METFORMIN\NATEGLINIDE
     Dosage: 2 DF(1 IN MORNING AND 1 AT NIGHT), DAILY
  3. INFLUENZA VACCIN [Suspect]
     Active Substance: INFLUENZA VIRUS VACCINE
     Indication: INFLUENZA
     Dosage: UNK UKN, UNK
  4. SIMVASTATIN. [Concomitant]
     Active Substance: SIMVASTATIN
     Indication: CARDIAC DISORDER
     Dosage: 1 DF, DAILY
     Dates: start: 2006
  5. STARFORM [Suspect]
     Active Substance: METFORMIN\NATEGLINIDE
     Dosage: 3 DF, DAILY
  6. A.A.S. [Concomitant]
     Indication: BLOOD DISORDER
     Dosage: 1 DF, DAILY
     Dates: start: 2006
  7. LOSARTAN [Concomitant]
     Active Substance: LOSARTAN
     Indication: CARDIAC DISORDER
     Dosage: 0.5 DF, DAILY
     Route: 048
     Dates: start: 2006
  8. INFLUENZA VACCIN [Suspect]
     Active Substance: INFLUENZA VIRUS VACCINE
     Dosage: UNK UKN, UNK
  9. SELOZOK [Concomitant]
     Active Substance: METOPROLOL SUCCINATE
     Indication: CARDIAC DISORDER
     Dosage: 1 DF, DAILY
     Route: 048
     Dates: start: 2006

REACTIONS (6)
  - Nasopharyngitis [Recovering/Resolving]
  - Diabetes mellitus inadequate control [Not Recovered/Not Resolved]
  - Blood glucose increased [Not Recovered/Not Resolved]
  - Infarction [Recovered/Resolved]
  - Cough [Recovering/Resolving]
  - Influenza [Recovering/Resolving]

NARRATIVE: CASE EVENT DATE: 200606
